FAERS Safety Report 9795296 (Version 1)
Quarter: 2014Q1

REPORT INFORMATION
  Report Type: Report from Study
  Country: US (occurrence: US)
  Receive Date: 20140103
  Receipt Date: 20140103
  Transmission Date: 20141002
  Serious: Yes (Other)
  Sender: FDA-Public Use
  Company Number: US-ROCHE-1325114

PATIENT
  Age: 58 Year
  Sex: Female

DRUGS (1)
  1. BONIVA [Suspect]
     Indication: OSTEOPOROSIS
     Route: 048

REACTIONS (7)
  - Hepatomegaly [Unknown]
  - Post-traumatic stress disorder [Unknown]
  - Abdominal pain [Unknown]
  - Haemorrhoids [Unknown]
  - Ovarian cancer [Unknown]
  - Depression [Unknown]
  - Constipation [Unknown]
